FAERS Safety Report 9997813 (Version 2)
Quarter: 2014Q1

REPORT INFORMATION
  Report Type: Report from Study
  Country: HU (occurrence: HU)
  Receive Date: 20140311
  Receipt Date: 20140311
  Transmission Date: 20141002
  Serious: Yes (Other)
  Sender: FDA-Public Use
  Company Number: HU-VERTEX PHARMACEUTICALS INC-2014-001155

PATIENT
  Sex: Female

DRUGS (1)
  1. TELAPREVIR [Suspect]
     Indication: HEPATITIS C
     Dosage: 1125 MG, UNK
     Route: 048
     Dates: start: 20140203, end: 20140303

REACTIONS (9)
  - Anorectal disorder [Unknown]
  - Pyrexia [Unknown]
  - Fatigue [Unknown]
  - Local swelling [Unknown]
  - Asthenia [Unknown]
  - Discomfort [Unknown]
  - Decreased appetite [Unknown]
  - Vein disorder [Unknown]
  - Tremor [Unknown]
